FAERS Safety Report 4326153-1 (Version None)
Quarter: 2004Q1

REPORT INFORMATION
  Report Type: 
  Country: None (occurrence: None)
  Receive Date: 20040323
  Receipt Date: 20040312
  Transmission Date: 20041129
  Serious: Yes (Death)
  Sender: FDA-Public Use
  Company Number: 163-20785-04020201 (0)

PATIENT
  Age: 54 Year
  Sex: Male

DRUGS (2)
  1. THALOMID [Suspect]
     Indication: GLIOMA
     Dosage: 400 MG, QD, ORAL
     Route: 048
     Dates: start: 20030617, end: 20030101
  2. THALOMID [Suspect]

REACTIONS (2)
  - GLIOMA [None]
  - MALIGNANT NEOPLASM PROGRESSION [None]
